FAERS Safety Report 8036368-7 (Version None)
Quarter: 2012Q1

REPORT INFORMATION
  Report Type: 
  Country: None (occurrence: None)
  Receive Date: 20120111
  Receipt Date: 20120106
  Transmission Date: 20120608
  Serious: Yes (Other)
  Sender: FDA-Public Use
  Company Number: PHHY2012TR001586

PATIENT
  Age: 46 Year
  Sex: Female

DRUGS (1)
  1. ZOMETA [Suspect]
     Dosage: 4 G, UNK
     Route: 042
     Dates: start: 20060101

REACTIONS (6)
  - OSTEONECROSIS OF JAW [None]
  - DENTAL CARIES [None]
  - LOOSE TOOTH [None]
  - GINGIVITIS [None]
  - POOR DENTAL CONDITION [None]
  - BREATH ODOUR [None]
